FAERS Safety Report 7487717-X (Version None)
Quarter: 2011Q2

REPORT INFORMATION
  Report Type: 
  Country: None (occurrence: None)
  Receive Date: 20110518
  Receipt Date: 20110505
  Transmission Date: 20111010
  Serious: Yes (Other)
  Sender: FDA-Public Use
  Company Number: PHEH2007US03266

PATIENT
  Sex: Male

DRUGS (11)
  1. ZOMETA [Suspect]
     Dosage: UNK
     Dates: start: 20021201, end: 20050801
  2. PROTONIX [Concomitant]
  3. VIAGRA [Concomitant]
     Dosage: UNK
     Dates: start: 20091105
  4. EPOGEN [Concomitant]
     Dosage: UNK
     Dates: start: 20011201
  5. DECADRON [Concomitant]
     Dosage: UNK
     Dates: start: 20100507
  6. AREDIA [Suspect]
     Dosage: 90 MG, UNK
     Dates: start: 20011201
  7. VITAMIN C [Concomitant]
     Dosage: UNK, DAILY
     Route: 048
  8. DIFLUCAN [Concomitant]
  9. REVLIMID [Concomitant]
     Dosage: UNK
     Dates: start: 20100507
  10. ATIVAN [Concomitant]
     Dosage: UNK
     Dates: start: 20100601
  11. PNEUMOVAX 23 [Concomitant]
     Dosage: UNK
     Dates: start: 20040101

REACTIONS (33)
  - HERPES ZOSTER [None]
  - OSTEONECROSIS OF JAW [None]
  - ERYTHEMA [None]
  - PLASMACYTOSIS [None]
  - DYSPNOEA [None]
  - MARROW HYPERPLASIA [None]
  - ANXIETY [None]
  - DECREASED INTEREST [None]
  - SCIATICA [None]
  - POLYP [None]
  - RENAL FAILURE [None]
  - SPINAL OSTEOARTHRITIS [None]
  - PRURITUS [None]
  - HYPERTENSION [None]
  - CONSTIPATION [None]
  - RECTAL HAEMORRHAGE [None]
  - CHRONIC OBSTRUCTIVE PULMONARY DISEASE [None]
  - IMPAIRED HEALING [None]
  - BASAL CELL CARCINOMA [None]
  - EMPHYSEMA [None]
  - CREATININE RENAL CLEARANCE DECREASED [None]
  - GENERAL PHYSICAL HEALTH DETERIORATION [None]
  - ERECTILE DYSFUNCTION [None]
  - HAEMODILUTION [None]
  - ANAEMIA [None]
  - ARTHRALGIA [None]
  - NEOPLASM MALIGNANT [None]
  - SINUS BRADYCARDIA [None]
  - PAIN [None]
  - THROMBOCYTOPENIA [None]
  - DENTAL CARIES [None]
  - PANCYTOPENIA [None]
  - ANGINA UNSTABLE [None]
